FAERS Safety Report 8027279-1 (Version None)
Quarter: 2012Q1

REPORT INFORMATION
  Report Type: 
  Country: None (occurrence: None)
  Receive Date: 20120105
  Receipt Date: 20120105
  Transmission Date: 20120608
  Serious: Yes (Death)
  Sender: FDA-Public Use
  Company Number: None

PATIENT
  Age: 84 Year
  Sex: Female
  Weight: 91.6 kg

DRUGS (19)
  1. ASPIRIN [Suspect]
     Indication: TRANSIENT ISCHAEMIC ATTACK
     Dosage: 325 MG PO DAILY
     Route: 048
  2. LOPERAMIDE [Concomitant]
  3. POTASSIUM CHLORIDE [Concomitant]
  4. DIOVAN HCT [Concomitant]
  5. BEN GAY [Concomitant]
  6. ACETAMINOPHEN [Concomitant]
  7. FEXOFENADINE [Concomitant]
  8. NITROGLYCERIN [Concomitant]
  9. AMLODIPINE [Concomitant]
  10. DOCUSATE [Concomitant]
  11. PRADAXA [Suspect]
     Indication: ATRIAL FIBRILLATION
     Dosage: 150 MG PO BID
     Route: 048
     Dates: start: 20111019
  12. BISACODYL [Concomitant]
  13. MILK OF MAGNESIA TAB [Concomitant]
  14. FISH OIL [Concomitant]
  15. PROMETHAZINE [Concomitant]
  16. MIRALAX [Concomitant]
  17. FLEETS ENEMA [Concomitant]
  18. SIMVASTATIN [Concomitant]
  19. BACLOFEN [Concomitant]

REACTIONS (5)
  - UNRESPONSIVE TO STIMULI [None]
  - ASTHENIA [None]
  - HAEMATOCHEZIA [None]
  - RESUSCITATION [None]
  - ABDOMINAL PAIN [None]
